FAERS Safety Report 9932965 (Version 1)
Quarter: 2014Q1

REPORT INFORMATION
  Report Type: Spontaneous
  Country: US (occurrence: US)
  Receive Date: 20140228
  Receipt Date: 20140228
  Transmission Date: 20141002
  Serious: No
  Sender: FDA-Public Use
  Company Number: US-ABBVIE-13P-163-1184563-00

PATIENT
  Age: 70 Year
  Sex: Male
  Weight: 97.61 kg

DRUGS (9)
  1. ANDROGEL [Suspect]
     Indication: BLOOD TESTOSTERONE DECREASED
     Dosage: 2 PACKETS DAILY
     Route: 061
     Dates: start: 2007
  2. LUTEIN [Concomitant]
     Indication: PRODUCT USED FOR UNKNOWN INDICATION
     Route: 048
  3. CALCIUM [Concomitant]
     Indication: BONE LOSS
     Route: 048
  4. PROTONIX [Concomitant]
     Indication: PRODUCT USED FOR UNKNOWN INDICATION
     Route: 048
  5. ASPIRIN [Concomitant]
     Indication: PRODUCT USED FOR UNKNOWN INDICATION
     Route: 048
  6. COENZYME Q10 [Concomitant]
     Indication: PRODUCT USED FOR UNKNOWN INDICATION
  7. MILK THISTLE [Concomitant]
     Indication: PRODUCT USED FOR UNKNOWN INDICATION
  8. FISH OIL [Concomitant]
     Indication: PRODUCT USED FOR UNKNOWN INDICATION
     Route: 048
  9. CARDURA [Concomitant]
     Indication: DYSURIA
     Dates: start: 2005

REACTIONS (5)
  - Urinary tract infection [Recovered/Resolved]
  - Urine abnormality [Recovered/Resolved]
  - Urine odour abnormal [Recovered/Resolved]
  - Culture urine positive [Recovered/Resolved]
  - Escherichia test positive [Recovered/Resolved]
